FAERS Safety Report 5191190-4 (Version None)
Quarter: 2006Q4

REPORT INFORMATION
  Report Type: 
  Country: None (occurrence: None)
  Receive Date: 20061226
  Receipt Date: 20060612
  Transmission Date: 20070319
  Serious: Yes (Hospitalization)
  Sender: FDA-Public Use
  Company Number: FR-AVENTIS-200612122FR

PATIENT
  Age: 40 Year
  Sex: Female
  Weight: 65 kg

DRUGS (1)
  1. CLOMID [Suspect]
     Indication: OVULATION INDUCTION
     Route: 048
     Dates: start: 20050101, end: 20060606

REACTIONS (4)
  - HEMIANOPIA [None]
  - OPTIC NEURITIS [None]
  - PAPILLOEDEMA [None]
  - VISUAL DISTURBANCE [None]
